FAERS Safety Report 24342147 (Version 1)
Quarter: 2024Q3

REPORT INFORMATION
  Report Type: Spontaneous
  Country: GB (occurrence: GB)
  Receive Date: 20240920
  Receipt Date: 20240920
  Transmission Date: 20241017
  Serious: Yes (Other)
  Sender: DR REDDYS
  Company Number: None

PATIENT
  Age: 4 Year
  Sex: Male

DRUGS (1)
  1. MONTELUKAST [Suspect]
     Active Substance: MONTELUKAST SODIUM
     Indication: Product used for unknown indication
     Dosage: 4MG
     Dates: end: 20240812

REACTIONS (6)
  - Aggression [Recovering/Resolving]
  - Thinking abnormal [Recovering/Resolving]
  - Anger [Recovered/Resolved]
  - Psychomotor hyperactivity [Recovering/Resolving]
  - Defiant behaviour [Recovered/Resolved]
  - Emotional disorder [Recovering/Resolving]

NARRATIVE: CASE EVENT DATE: 20240213
